FAERS Safety Report 6539041-7 (Version None)
Quarter: 2010Q1

REPORT INFORMATION
  Report Type: 
  Country: None (occurrence: None)
  Receive Date: 20100108
  Receipt Date: 20090526
  Transmission Date: 20100710
  Serious: Yes (Hospitalization, Other)
  Sender: FDA-Public Use
  Company Number: 2009BH009121

PATIENT
  Age: 44 Year
  Sex: Female

DRUGS (1)
  1. VANCOMYCIN HCL [Suspect]
     Indication: BACTERIAL INFECTION
     Dosage: 1 GM;EVERY DAY;IV
     Route: 042
     Dates: start: 20090513, end: 20090522

REACTIONS (1)
  - RENAL FAILURE [None]
